FAERS Safety Report 10805176 (Version 1)
Quarter: 2015Q1

REPORT INFORMATION
  Report Type: Report from Study
  Country: US (occurrence: US)
  Receive Date: 20150217
  Receipt Date: 20150217
  Transmission Date: 20150721
  Serious: No
  Sender: FDA-Public Use
  Company Number: US-ABBVIE-14K-163-1258013-00

PATIENT
  Age: 53 Year
  Sex: Female

DRUGS (4)
  1. PHENELZINE [Suspect]
     Active Substance: PHENELZINE
     Indication: MIGRAINE
     Dosage: FIVE TABLETS DAILY
     Dates: end: 201408
  2. HUMIRA [Suspect]
     Active Substance: ADALIMUMAB
     Indication: RHEUMATOID ARTHRITIS
     Dates: start: 20140507
  3. LEVETIRACETAM. [Suspect]
     Active Substance: LEVETIRACETAM
     Indication: MIGRAINE
  4. PHENELZINE [Suspect]
     Active Substance: PHENELZINE
     Dosage: TWO IN MORNING AND TWO IN EVENING
     Dates: start: 201408

REACTIONS (7)
  - Dizziness [Recovered/Resolved]
  - Loss of consciousness [Recovered/Resolved]
  - Migraine [Recovering/Resolving]
  - Sensitivity to weather change [Unknown]
  - Drug effect decreased [Unknown]
  - Drug ineffective [Unknown]
  - Hypotension [Recovered/Resolved]

NARRATIVE: CASE EVENT DATE: 2014
